FAERS Safety Report 7951236-4 (Version None)
Quarter: 2011Q4

REPORT INFORMATION
  Report Type: 
  Country: None (occurrence: None)
  Receive Date: 20111201
  Receipt Date: 20111121
  Transmission Date: 20120403
  Serious: Yes (Other)
  Sender: FDA-Public Use
  Company Number: PHEH2011US04668

PATIENT
  Sex: Female
  Weight: 10.884 kg

DRUGS (4)
  1. CLONAZEPAM [Concomitant]
     Indication: SCHIZOAFFECTIVE DISORDER
     Dosage: 1 MG AM 2 MG HS
     Route: 048
  2. CLOZARIL [Suspect]
     Indication: SCHIZOAFFECTIVE DISORDER
     Dosage: 25 MG, QD
     Route: 048
  3. SERTRALINE HYDROCHLORIDE [Concomitant]
     Indication: SCHIZOAFFECTIVE DISORDER
     Dosage: 100 MG, QD
     Route: 048
  4. INVEGA [Concomitant]
     Indication: SCHIZOAFFECTIVE DISORDER
     Dosage: 10 MG, BID

REACTIONS (1)
  - LYMPHOCYTE COUNT DECREASED [None]
